FAERS Safety Report 7709303-6 (Version None)
Quarter: 2011Q3

REPORT INFORMATION
  Report Type: 
  Country: None (occurrence: None)
  Receive Date: 20110825
  Receipt Date: 20110519
  Transmission Date: 20111222
  Serious: No
  Sender: FDA-Public Use
  Company Number: US-TYCO HEALTHCARE/MALLINCKRODT-T201100892

PATIENT
  Sex: Male

DRUGS (2)
  1. FENTANYL-100 [Suspect]
     Indication: PAIN
     Dosage: 75 UG/HR, Q 72 HOURS
     Route: 062
  2. MAXZIDE [Concomitant]
     Dosage: 1/2 TAB QAM

REACTIONS (2)
  - APPLICATION SITE REACTION [None]
  - DRUG INEFFECTIVE [None]
